FAERS Safety Report 8778743 (Version 3)
Quarter: 2019Q4

REPORT INFORMATION
  Report Type: Spontaneous
  Country: US (occurrence: US)
  Receive Date: 20120913
  Receipt Date: 20191219
  Transmission Date: 20200122
  Serious: Yes (Other)
  Sender: FDA-Public Use
  Company Number: US-UCBSA-065319

PATIENT
  Age: 51 Year
  Sex: Female
  Weight: 74.3 kg

DRUGS (13)
  1. ISONIAZID. [Suspect]
     Active Substance: ISONIAZID
     Indication: MYCOBACTERIUM TUBERCULOSIS COMPLEX TEST POSITIVE
     Dosage: 300 MG
     Route: 048
     Dates: start: 2012, end: 20121126
  2. SINGULAIR [Concomitant]
     Active Substance: MONTELUKAST SODIUM
     Dosage: 10 MG, ONCE DAILY (QD)
     Route: 048
  3. AUGMENTIN [Concomitant]
     Active Substance: AMOXICILLIN\CLAVULANATE POTASSIUM
  4. ZYRTEC [Concomitant]
     Active Substance: CETIRIZINE HYDROCHLORIDE
     Dosage: 10 MG, ONCE DAILY (QD)
     Route: 048
  5. CIMZIA [Suspect]
     Active Substance: CERTOLIZUMAB PEGOL
     Dosage: FOR 2 YEARS
     Route: 058
  6. LIBRAX [Concomitant]
     Active Substance: CHLORDIAZEPOXIDE HYDROCHLORIDE\CLIDINIUM BROMIDE
     Dosage: 5-2.5 MG ONCE DAILY
     Route: 048
  7. LIDODERM [Concomitant]
     Active Substance: LIDOCAINE
     Dosage: 5%(700 MG/PATCH) AS REQUIRED
     Route: 061
  8. PREVACID [Concomitant]
     Active Substance: LANSOPRAZOLE
     Dosage: 15 MG, 2X/DAY (BID)
     Route: 048
  9. PULMICORT TURBUHALER [Concomitant]
     Active Substance: BUDESONIDE
     Dosage: 0.5 MG/2 ML AS REQUIRED
  10. ALBUTEROL SULFATE. [Concomitant]
     Active Substance: ALBUTEROL SULFATE
     Dosage: 1.25 MG/3 ML 2 PUFFS EVERY HOURS
  11. IBUPROFEN. [Concomitant]
     Active Substance: IBUPROFEN
     Dosage: 100 MG AS  REQUIRED
  12. MELATONIN [Concomitant]
     Active Substance: MELATONIN
     Dosage: 3 MG, ONCE DAILY (QD)
     Route: 048
  13. ASACOL [Concomitant]
     Active Substance: MESALAMINE
     Dosage: 400 MG, 2X/DAY (BID)
     Route: 048

REACTIONS (7)
  - Myalgia [Unknown]
  - Abdominal pain [Unknown]
  - Mycobacterium tuberculosis complex test positive [Unknown]
  - Back pain [Unknown]
  - Neck pain [Unknown]
  - Arthralgia [Unknown]
  - Liver function test increased [Unknown]

NARRATIVE: CASE EVENT DATE: 2012
